FAERS Safety Report 6376704-0 (Version None)
Quarter: 2009Q3

REPORT INFORMATION
  Report Type: 
  Country: None (occurrence: None)
  Receive Date: 20090924
  Receipt Date: 20090924
  Transmission Date: 20100115
  Serious: No
  Sender: FDA-Public Use
  Company Number: None

PATIENT
  Sex: Male
  Weight: 96.1626 kg

DRUGS (1)
  1. OMEPRAZOLE [Suspect]
     Dosage: 40 MG 1/DAY MOUTH
     Route: 048
     Dates: start: 20090909, end: 20090910

REACTIONS (2)
  - BACK PAIN [None]
  - CONSTIPATION [None]
